FAERS Safety Report 21830834 (Version 1)
Quarter: 2023Q1

REPORT INFORMATION
  Report Type: Spontaneous
  Country: None (occurrence: US)
  Receive Date: 20230106
  Receipt Date: 20230106
  Transmission Date: 20230418
  Serious: Yes (Hospitalization, Other)
  Sender: FDA-Public Use
  Company Number: US-AKCEA THERAPEUTICS, INC.-2023IS001014

PATIENT
  Age: 63 Year
  Sex: Male
  Weight: 104.55 kg

DRUGS (24)
  1. TEGSEDI [Suspect]
     Active Substance: INOTERSEN SODIUM
     Indication: Amyloidosis
     Route: 065
     Dates: start: 2018
  2. DEVICE [Suspect]
     Active Substance: DEVICE
  3. ACYCLOVIR [Suspect]
     Active Substance: ACYCLOVIR
     Route: 048
     Dates: start: 2017
  4. ATORVASTATIN [Suspect]
     Active Substance: ATORVASTATIN
     Route: 048
     Dates: start: 20170122
  5. DULOXETINE [Suspect]
     Active Substance: DULOXETINE
     Route: 048
     Dates: start: 2019
  6. GLIPIZIDE [Suspect]
     Active Substance: GLIPIZIDE
     Route: 048
     Dates: start: 2017
  7. LOPERAMIDE HYDROCHLORIDE [Suspect]
     Active Substance: LOPERAMIDE HYDROCHLORIDE
     Route: 048
     Dates: start: 2019
  8. MERCAPTOPURINE [Suspect]
     Active Substance: MERCAPTOPURINE
     Route: 048
     Dates: start: 2017
  9. MESALAMINE [Suspect]
     Active Substance: MESALAMINE
     Route: 048
     Dates: start: 2019
  10. POTASSIUM CHLORIDE [Suspect]
     Active Substance: POTASSIUM CHLORIDE
     Route: 048
     Dates: start: 2017
  11. ALBUTEROL SULFATE [Suspect]
     Active Substance: ALBUTEROL SULFATE
     Route: 065
     Dates: start: 2019
  12. SILDENAFIL CITRATE [Suspect]
     Active Substance: SILDENAFIL CITRATE
     Route: 048
     Dates: start: 2019
  13. SPIRONOLACTONE [Suspect]
     Active Substance: SPIRONOLACTONE
     Route: 048
     Dates: start: 20190328
  14. TAFAMIDIS MEGLUMINE [Suspect]
     Active Substance: TAFAMIDIS MEGLUMINE
     Route: 048
     Dates: start: 20200210, end: 20200306
  15. TAFAMIDIS MEGLUMINE [Suspect]
     Active Substance: TAFAMIDIS MEGLUMINE
     Dates: start: 20200307, end: 20200313
  16. TAFAMIDIS MEGLUMINE [Suspect]
     Active Substance: TAFAMIDIS MEGLUMINE
     Route: 048
     Dates: start: 20200314
  17. TAMSULOSIN [Suspect]
     Active Substance: TAMSULOSIN
     Route: 048
     Dates: start: 2017
  18. TESTOSTERONE [Suspect]
     Active Substance: TESTOSTERONE
     Route: 061
     Dates: start: 2017
  19. TORSEMIDE [Suspect]
     Active Substance: TORSEMIDE
     Route: 048
  20. TORSEMIDE [Suspect]
     Active Substance: TORSEMIDE
     Route: 048
     Dates: start: 2019
  21. TORSEMIDE [Suspect]
     Active Substance: TORSEMIDE
     Route: 048
     Dates: start: 20200307
  22. TORSEMIDE [Suspect]
     Active Substance: TORSEMIDE
     Route: 048
     Dates: start: 20200308, end: 20200311
  23. TORSEMIDE [Suspect]
     Active Substance: TORSEMIDE
     Route: 048
     Dates: start: 20200312
  24. TORSEMIDE [Suspect]
     Active Substance: TORSEMIDE
     Route: 048
     Dates: start: 20200313

REACTIONS (1)
  - Acute kidney injury [Recovered/Resolved]

NARRATIVE: CASE EVENT DATE: 20200306
